FAERS Safety Report 8965765 (Version 1)
Quarter: 2012Q4

REPORT INFORMATION
  Report Type: Report from Study
  Country: DE (occurrence: DE)
  Receive Date: 20121217
  Receipt Date: 20121217
  Transmission Date: 20130627
  Serious: Yes (Hospitalization)
  Sender: FDA-Public Use
  Company Number: DE-SANOFI-AVENTIS-2012SA091686

PATIENT
  Age: 84 Year
  Sex: Male
  Weight: 54 kg

DRUGS (6)
  1. JEVTANA [Suspect]
     Indication: HORMONE-REFRACTORY PROSTATE CANCER
     Route: 051
     Dates: start: 20121002, end: 20121002
  2. PREDNISOLONE [Concomitant]
     Dates: start: 20121002
  3. DEXAMETHASONE [Concomitant]
     Dates: start: 20121002
  4. ZOMETA [Concomitant]
     Dates: start: 20110419
  5. ELIGARD [Concomitant]
     Dates: start: 20090622
  6. TRENANTONE [Concomitant]
     Dates: start: 20090622

REACTIONS (2)
  - Hypotension [Unknown]
  - Hyperkalaemia [Unknown]
